FAERS Safety Report 6545233-3 (Version None)
Quarter: 2010Q1

REPORT INFORMATION
  Report Type: 
  Country: None (occurrence: None)
  Receive Date: 20100121
  Receipt Date: 20090803
  Transmission Date: 20100710
  Serious: No
  Sender: FDA-Public Use
  Company Number: US-KINGPHARMUSA00001-K200900931

PATIENT
  Age: 17 Month
  Sex: Male
  Weight: 11.338 kg

DRUGS (1)
  1. EPIPEN JR. [Suspect]
     Indication: FOOD ALLERGY
     Dosage: 0.15 MG, SINGLE
     Route: 030
     Dates: start: 20090719, end: 20090719

REACTIONS (1)
  - INJECTION SITE PAIN [None]
